FAERS Safety Report 5109204-6 (Version None)
Quarter: 2006Q3

REPORT INFORMATION
  Report Type: 
  Country: None (occurrence: None)
  Receive Date: 20060920
  Receipt Date: 20060918
  Transmission Date: 20061208
  Serious: Yes (Life-Threatening)
  Sender: FDA-Public Use
  Company Number: 2006CG01519

PATIENT
  Age: 44 Year
  Sex: Female

DRUGS (2)
  1. CARBOCAINE [Suspect]
     Indication: LOCAL ANAESTHESIA
     Dates: start: 20060617, end: 20060617
  2. AUGMENTIN [Suspect]
     Dosage: AMOXICILLIN 2 G / CLAVULANIC ACID 200 MG
     Route: 042
     Dates: start: 20060617, end: 20060617

REACTIONS (3)
  - CIRCULATORY COLLAPSE [None]
  - LARYNGEAL OEDEMA [None]
  - OVERDOSE [None]
